FAERS Safety Report 12743955 (Version 1)
Quarter: 2016Q3

REPORT INFORMATION
  Report Type: Spontaneous
  Country: SE (occurrence: SE)
  Receive Date: 20160914
  Receipt Date: 20160914
  Transmission Date: 20161109
  Serious: Yes (Other)
  Sender: FDA-Public Use
  Company Number: SE-MYLANLABS-2016M1038196

PATIENT

DRUGS (1)
  1. TAMOXIFEN MYLAN 20 MG TABLETTEN [Suspect]
     Active Substance: TAMOXIFEN
     Indication: BREAST CANCER
     Dosage: 20 MG, QD
     Route: 048
     Dates: start: 20160801, end: 20160804

REACTIONS (5)
  - Musculoskeletal stiffness [Unknown]
  - Musculoskeletal stiffness [None]
  - Headache [Unknown]
  - Product substitution issue [Unknown]
  - Pain [Unknown]

NARRATIVE: CASE EVENT DATE: 201608
